FAERS Safety Report 15824866 (Version 1)
Quarter: 2019Q1

REPORT INFORMATION
  Report Type: Spontaneous
  Country: US (occurrence: US)
  Receive Date: 20190115
  Receipt Date: 20190115
  Transmission Date: 20190417
  Serious: Yes (Hospitalization)
  Sender: FDA-Public Use
  Company Number: US-UNITED THERAPEUTICS-UNT-2019-000613

PATIENT
  Age: 60 Year
  Sex: Female

DRUGS (1)
  1. ORENITRAM [Suspect]
     Active Substance: TREPROSTINIL
     Indication: PULMONARY ARTERIAL HYPERTENSION
     Dosage: 2 MG, TID
     Route: 048
     Dates: start: 20181122

REACTIONS (7)
  - Flushing [Unknown]
  - Fatigue [Unknown]
  - Sinusitis bacterial [Unknown]
  - Asthenia [Unknown]
  - Gait disturbance [Unknown]
  - Viral sinusitis [Unknown]
  - Ear discomfort [Unknown]

NARRATIVE: CASE EVENT DATE: 201812
